FAERS Safety Report 7299361-8 (Version None)
Quarter: 2011Q1

REPORT INFORMATION
  Report Type: 
  Country: None (occurrence: None)
  Receive Date: 20110217
  Receipt Date: 20110209
  Transmission Date: 20110831
  Serious: Yes (Other)
  Sender: FDA-Public Use
  Company Number: A0913841A

PATIENT
  Age: 40 Year
  Sex: Female

DRUGS (4)
  1. LEXAPRO [Suspect]
     Indication: DEPRESSION
     Dosage: 20MG PER DAY
     Route: 048
     Dates: start: 20050101
  2. WELLBUTRIN [Suspect]
     Indication: DEPRESSION
     Route: 065
     Dates: end: 20100601
  3. TRAZODONE [Concomitant]
     Indication: INSOMNIA
     Dosage: 150MG PER DAY
  4. TOPAMAX [Concomitant]
     Indication: MIGRAINE

REACTIONS (4)
  - DRUG INEFFECTIVE [None]
  - PRODUCT QUALITY ISSUE [None]
  - CRYING [None]
  - SUICIDAL IDEATION [None]
